FAERS Safety Report 20988353 (Version 1)
Quarter: 2022Q2

REPORT INFORMATION
  Report Type: Spontaneous
  Country: US (occurrence: None)
  Receive Date: 20220620
  Receipt Date: 20220620
  Transmission Date: 20220720
  Serious: Yes (Other)
  Sender: FDA-Public Use
  Company Number: None

PATIENT
  Age: 51 Year
  Sex: Male
  Weight: 93.15 kg

DRUGS (6)
  1. RYVENT [Suspect]
     Active Substance: CARBINOXAMINE MALEATE
     Indication: Hypersensitivity
     Dosage: FREQUENCY : AT BEDTIME;?
     Route: 048
     Dates: start: 20220523, end: 20220618
  2. METOPROLOL [Concomitant]
     Active Substance: METOPROLOL
  3. CANDESARTAN [Concomitant]
     Active Substance: CANDESARTAN
  4. CLONAZEPAM [Concomitant]
     Active Substance: CLONAZEPAM
  5. ZINC [Concomitant]
     Active Substance: ZINC
  6. GLUCOSAMINE [Concomitant]
     Active Substance: GLUCOSAMINE

REACTIONS (3)
  - Heart rate increased [None]
  - Blood pressure increased [None]
  - Therapy interrupted [None]

NARRATIVE: CASE EVENT DATE: 20220620
